FAERS Safety Report 19077097 (Version 1)
Quarter: 2021Q1

REPORT INFORMATION
  Report Type: Spontaneous
  Country: CA (occurrence: CA)
  Receive Date: 20210331
  Receipt Date: 20210331
  Transmission Date: 20210420
  Serious: Yes (Other)
  Sender: FDA-Public Use
  Company Number: CA-009507513-2103CAN007943

PATIENT
  Age: 67 Year
  Sex: Female
  Weight: 73 kg

DRUGS (1)
  1. KEYTRUDA [Suspect]
     Active Substance: PEMBROLIZUMAB
     Indication: NON-SMALL CELL LUNG CANCER
     Dosage: KEYTRUDA FOR INFUSION, 4ML SINGLE USE VIAL, 1 EVERY 42 DAYS
     Route: 042

REACTIONS (2)
  - Blood creatinine increased [Unknown]
  - Nephritis [Unknown]
